FAERS Safety Report 5166187-0 (Version None)
Quarter: 2006Q4

REPORT INFORMATION
  Report Type: 
  Country: None (occurrence: None)
  Receive Date: 20061129
  Receipt Date: 20061116
  Transmission Date: 20070319
  Serious: Yes (Other)
  Sender: FDA-Public Use
  Company Number: 2006142684

PATIENT
  Age: 14 Year
  Sex: Female

DRUGS (1)
  1. NEURONTIN [Suspect]

REACTIONS (1)
  - CONVULSION [None]
